FAERS Safety Report 10241023 (Version 1)
Quarter: 2014Q2

REPORT INFORMATION
  Report Type: Other
  Country: FR (occurrence: FR)
  Receive Date: 20140617
  Receipt Date: 20140617
  Transmission Date: 20141212
  Serious: Yes (Hospitalization)
  Sender: FDA-Public Use
  Company Number: FR-ASTELLAS-2014EU007594

PATIENT
  Age: 62 Year
  Sex: Female

DRUGS (7)
  1. PROGRAF [Suspect]
     Indication: RENAL TRANSPLANT
     Route: 048
  2. PREVISCAN                          /00789001/ [Suspect]
     Indication: ATRIAL FIBRILLATION
     Dosage: UNK UNK, ACCORDING TO INR
     Route: 048
     Dates: end: 20140307
  3. PREVISCAN                          /00789001/ [Suspect]
     Dosage: UNK UNK, ACCORDING TO INR
     Route: 048
     Dates: start: 20140311
  4. CELLCEPT                           /01275102/ [Suspect]
     Indication: RENAL TRANSPLANT
     Route: 048
  5. KARDEGIC [Suspect]
     Indication: ARTERIAL DISORDER
     Route: 048
  6. KARDEGIC [Suspect]
     Route: 048
     Dates: start: 20140308
  7. OFLOCET                            /00731801/ [Suspect]
     Indication: PRODUCT USED FOR UNKNOWN INDICATION
     Route: 048
     Dates: start: 20140304, end: 20140307

REACTIONS (2)
  - Gastrointestinal haemorrhage [Recovering/Resolving]
  - Haemorrhagic anaemia [Recovering/Resolving]
